FAERS Safety Report 22007216 (Version 3)
Quarter: 2023Q2

REPORT INFORMATION
  Report Type: Spontaneous
  Country: IT (occurrence: IT)
  Receive Date: 20230217
  Receipt Date: 20230508
  Transmission Date: 20230721
  Serious: Yes (Other)
  Sender: FDA-Public Use
  Company Number: IT-CELLTRION INC.-2023IT000974

PATIENT

DRUGS (13)
  1. RITUXIMAB [Suspect]
     Active Substance: RITUXIMAB
     Indication: B-cell lymphoma
     Dosage: UNK UNK, CYCLIC (ONE CYCLE)
  2. RITUXIMAB [Suspect]
     Active Substance: RITUXIMAB
     Indication: Marginal zone lymphoma
  3. IBRUTINIB [Suspect]
     Active Substance: IBRUTINIB
     Indication: Marginal zone lymphoma
  4. IBRUTINIB [Suspect]
     Active Substance: IBRUTINIB
     Indication: B-cell lymphoma
  5. IBRUTINIB [Suspect]
     Active Substance: IBRUTINIB
     Indication: Disease progression
  6. IMBRUVICA [Suspect]
     Active Substance: IBRUTINIB
     Indication: B-cell lymphoma
     Route: 048
  7. LENALIDOMIDE [Suspect]
     Active Substance: LENALIDOMIDE
     Indication: B-cell lymphoma
     Dosage: UNK
  8. LENALIDOMIDE [Suspect]
     Active Substance: LENALIDOMIDE
     Indication: Marginal zone lymphoma
  9. POLATUZUMAB VEDOTIN [Suspect]
     Active Substance: POLATUZUMAB VEDOTIN
     Indication: Marginal zone lymphoma
     Dosage: UNK UNK, CYCLIC (ONE CYCLE)
  10. POLATUZUMAB VEDOTIN [Suspect]
     Active Substance: POLATUZUMAB VEDOTIN
     Indication: B-cell lymphoma
  11. CYCLOSPORINE [Concomitant]
     Active Substance: CYCLOSPORINE
  12. DEXAMETHASONE [Concomitant]
     Active Substance: DEXAMETHASONE
  13. TOCILIZUMAB [Concomitant]
     Active Substance: TOCILIZUMAB

REACTIONS (7)
  - Thrombocytopenia [Unknown]
  - Thrombocytopenia [Not Recovered/Not Resolved]
  - Neutropenia [Unknown]
  - Neutropenia [Not Recovered/Not Resolved]
  - Anaemia [Not Recovered/Not Resolved]
  - Therapy partial responder [Unknown]
  - Intentional product use issue [Unknown]
